FAERS Safety Report 8358298-3 (Version None)
Quarter: 2012Q2

REPORT INFORMATION
  Report Type: 
  Country: None (occurrence: None)
  Receive Date: 20120514
  Receipt Date: 20120511
  Transmission Date: 20120825
  Serious: Yes (Death)
  Sender: FDA-Public Use
  Company Number: AU-B.I. PHARMACEUTICALS,INC./RIDGEFIELD-2012-AU-00828AU

PATIENT
  Sex: Female

DRUGS (2)
  1. PROTON PUMP INHIBITOR [Concomitant]
  2. PRADAXA [Suspect]
     Indication: PULMONARY EMBOLISM
     Dosage: 220 MG
     Route: 048
     Dates: start: 20110628

REACTIONS (1)
  - BREAST CANCER STAGE IV [None]
